FAERS Safety Report 9275880 (Version 1)
Quarter: 2013Q2

REPORT INFORMATION
  Report Type: Spontaneous
  Country: US (occurrence: US)
  Receive Date: 20130507
  Receipt Date: 20130507
  Transmission Date: 20140414
  Serious: Yes (Hospitalization)
  Sender: FDA-Public Use
  Company Number: US-JNJFOC-20130416147

PATIENT
  Sex: Male

DRUGS (6)
  1. TYLENOL REGULAR STRENGTH [Suspect]
     Indication: BACK PAIN
     Route: 048
     Dates: start: 2010
  2. TYLENOL REGULAR STRENGTH [Suspect]
     Indication: CHILLS
     Route: 048
     Dates: start: 2010
  3. TYLENOL REGULAR STRENGTH [Suspect]
     Indication: PYREXIA
     Route: 048
     Dates: start: 2010
  4. EXTRA STRENGTH TYLENOL [Suspect]
     Indication: BACK PAIN
     Route: 048
     Dates: start: 2010
  5. EXTRA STRENGTH TYLENOL [Suspect]
     Indication: CHILLS
     Route: 048
     Dates: start: 2010
  6. EXTRA STRENGTH TYLENOL [Suspect]
     Indication: PYREXIA
     Route: 048
     Dates: start: 2010

REACTIONS (2)
  - Acute hepatic failure [Unknown]
  - Toxicity to various agents [Unknown]
